FAERS Safety Report 17094873 (Version 1)
Quarter: 2019Q4

REPORT INFORMATION
  Report Type: Spontaneous
  Country: US (occurrence: US)
  Receive Date: 20191130
  Receipt Date: 20191130
  Transmission Date: 20200122
  Serious: Yes (Other)
  Sender: FDA-Public Use
  Company Number: US-TEVA-2019-US-1142496

PATIENT
  Age: 90 Year
  Sex: Female
  Weight: 63 kg

DRUGS (2)
  1. PROAIR HFA [Suspect]
     Active Substance: ALBUTEROL SULFATE
     Indication: ASTHMA
     Dosage: TWO PUFFS FOUR TIMES DAILY AS NEEDED
     Route: 065
     Dates: start: 20191007, end: 20191118
  2. SYMBICORT [Concomitant]
     Active Substance: BUDESONIDE\FORMOTEROL FUMARATE DIHYDRATE
     Indication: ASTHMA
     Route: 065

REACTIONS (2)
  - Hallucination [Unknown]
  - Cough [Unknown]

NARRATIVE: CASE EVENT DATE: 201910
